FAERS Safety Report 21761793 (Version 1)
Quarter: 2022Q4

REPORT INFORMATION
  Report Type: Spontaneous
  Country: FR (occurrence: FR)
  Receive Date: 20221221
  Receipt Date: 20221221
  Transmission Date: 20230112
  Serious: Yes (Hospitalization)
  Sender: FDA-Public Use
  Company Number: None

PATIENT
  Age: 89 Year
  Sex: Male
  Weight: 53 kg

DRUGS (2)
  1. DIPROSONE [Suspect]
     Active Substance: BETAMETHASONE DIPROPIONATE
     Indication: Pemphigoid
     Dosage: 1 TUBES/DAY, DOSAGE FORM REPORTED AS ^1 DOSE FORM^
     Route: 003
     Dates: start: 20210604
  2. CLOBETASOL PROPIONATE [Suspect]
     Active Substance: CLOBETASOL PROPIONATE
     Indication: Pemphigoid
     Dosage: 4TUBES/DAY, DOSAGE FORM REPORTED AS ^1 DOSE FORM^
     Route: 003
     Dates: start: 202107

REACTIONS (1)
  - Osteoporosis [Recovering/Resolving]

NARRATIVE: CASE EVENT DATE: 20211021
